FAERS Safety Report 9210747 (Version 2)
Quarter: 2015Q2

REPORT INFORMATION
  Report Type: Spontaneous
  Country: PT (occurrence: PT)
  Receive Date: 20130404
  Receipt Date: 20150422
  Transmission Date: 20150821
  Serious: Yes (Death, Hospitalization)
  Sender: FDA-Public Use
  Company Number: PHHY2013PT032111

PATIENT
  Age: 88 Year
  Sex: Female

DRUGS (1)
  1. AMOXICILLIN-CLAVULANIC ACID [Suspect]
     Active Substance: AMOXICILLIN\CLAVULANIC ACID
     Indication: URINARY TRACT INFECTION
     Route: 048

REACTIONS (11)
  - Pyrexia [Fatal]
  - Abdominal distension [Fatal]
  - Leukocytosis [Fatal]
  - Clostridium test positive [Fatal]
  - Heart rate increased [Fatal]
  - Tachypnoea [Fatal]
  - Mucous membrane disorder [Fatal]
  - Metabolic acidosis [Unknown]
  - Pain [Fatal]
  - Blood pressure decreased [Fatal]
  - Megacolon [Fatal]
